FAERS Safety Report 19227051 (Version 3)
Quarter: 2021Q2

REPORT INFORMATION
  Report Type: Spontaneous
  Country: GB (occurrence: GB)
  Receive Date: 20210507
  Receipt Date: 20210518
  Transmission Date: 20210717
  Serious: Yes (Other)
  Sender: FDA-Public Use
  Company Number: GB-CELLTRION INC.-2021GB006049

PATIENT

DRUGS (1)
  1. REMSIMA [Suspect]
     Active Substance: INFLIXIMAB
     Indication: SERONEGATIVE ARTHRITIS
     Dosage: 120MG, FORNIGHTLY/ EVERY 2 WEEKS
     Route: 058

REACTIONS (9)
  - Intentional dose omission [Unknown]
  - Nasopharyngitis [Unknown]
  - Fatigue [Unknown]
  - Seronegative arthritis [Unknown]
  - Condition aggravated [Unknown]
  - Pallor [Unknown]
  - Chills [Unknown]
  - Infection [Unknown]
  - Headache [Unknown]
